FAERS Safety Report 24878123 (Version 2)
Quarter: 2025Q2

REPORT INFORMATION
  Report Type: Spontaneous
  Country: ES (occurrence: ES)
  Receive Date: 20250123
  Receipt Date: 20250414
  Transmission Date: 20250716
  Serious: Yes (Other)
  Sender: MYLAN
  Company Number: ES-MYLANLABS-2025M1004214

PATIENT
  Age: 46 Year
  Sex: Female
  Weight: 75 kg

DRUGS (4)
  1. GABAPENTIN [Suspect]
     Active Substance: GABAPENTIN
     Indication: Neuromyotonia
     Dosage: 100 MILLIGRAM, BID
     Dates: start: 20241001, end: 20241102
  2. GABAPENTIN [Suspect]
     Active Substance: GABAPENTIN
     Indication: VIth nerve disorder
  3. CARBAMAZEPINE [Concomitant]
     Active Substance: CARBAMAZEPINE
     Indication: Neuromyotonia
     Dosage: 20 MILLIGRAM, BID
     Dates: start: 20241102, end: 20241123
  4. CARBAMAZEPINE [Concomitant]
     Active Substance: CARBAMAZEPINE
     Indication: VIth nerve disorder

REACTIONS (1)
  - Drug ineffective [Unknown]
